FAERS Safety Report 4981862-6 (Version None)
Quarter: 2006Q2

REPORT INFORMATION
  Report Type: 
  Country: None (occurrence: None)
  Receive Date: 20060425
  Receipt Date: 20060210
  Transmission Date: 20061013
  Serious: Yes (Hospitalization, Disabling)
  Sender: FDA-Public Use
  Company Number: PHNU2006AU00919

PATIENT
  Age: 30 Year
  Sex: Female

DRUGS (2)
  1. CLOZARIL [Suspect]
     Indication: SCHIZOPHRENIA
     Dosage: UP TO 300 MG/DAY
     Route: 048
     Dates: start: 20021101, end: 20060401
  2. CLOZARIL [Suspect]
     Dosage: DECREASED TO 100 MG/DAY
     Route: 048
     Dates: start: 20060101

REACTIONS (1)
  - OBSESSIVE-COMPULSIVE DISORDER [None]
